FAERS Safety Report 6396868-2 (Version None)
Quarter: 2009Q4

REPORT INFORMATION
  Report Type: 
  Country: None (occurrence: None)
  Receive Date: 20091012
  Receipt Date: 20090714
  Transmission Date: 20100525
  Serious: No
  Sender: FDA-Public Use
  Company Number: US-ASTRAZENECA-2009UW19726

PATIENT
  Sex: Female
  Weight: 59.9 kg

DRUGS (12)
  1. SYMBICORT [Suspect]
     Indication: ASTHMA
     Dosage: 160/4.5, 1 PUFF
     Route: 055
  2. SYMBICORT [Suspect]
     Dosage: 160/4.5, 2 PUFF
     Route: 055
     Dates: start: 20080101
  3. VICODIN [Concomitant]
  4. METHOTREXATE [Concomitant]
  5. PREDNISONE [Concomitant]
  6. FOLIC ACID [Concomitant]
  7. PROTONIX [Concomitant]
  8. SYNTHROID [Concomitant]
  9. POTASSIUM CHLORIDE [Concomitant]
  10. LIPITOR [Concomitant]
  11. DYAZIDE [Concomitant]
  12. VITAMIN D [Concomitant]

REACTIONS (3)
  - NASOPHARYNGITIS [None]
  - PNEUMONIA [None]
  - THERAPEUTIC RESPONSE DECREASED [None]
